FAERS Safety Report 6315656-6 (Version None)
Quarter: 2009Q3

REPORT INFORMATION
  Report Type: 
  Country: None (occurrence: None)
  Receive Date: 20090818
  Receipt Date: 20090803
  Transmission Date: 20100115
  Serious: Yes (Other)
  Sender: FDA-Public Use
  Company Number: 2009ID004591

PATIENT
  Age: 45 Year
  Sex: Female

DRUGS (7)
  1. PALOXI(PALONOSETRON HYDROCHLORIDE) INJECTION, 0.25MG/5ML [Suspect]
     Indication: PROPHYLAXIS OF NAUSEA AND VOMITING
     Dosage: 0.25 MG, SINGLE, IV DRIP
     Route: 041
     Dates: start: 20090707, end: 20090707
  2. PACLITAXEL [Concomitant]
  3. EPIRUBICIN [Concomitant]
  4. DEXAMETHASONE TAB [Concomitant]
  5. DIPHENHYDRAMINE HCL [Concomitant]
  6. RANITIDINE HCL [Concomitant]
  7. SODIUM CHLORIDE [Concomitant]

REACTIONS (5)
  - BAND NEUTROPHIL PERCENTAGE DECREASED [None]
  - FATIGUE [None]
  - GRAND MAL CONVULSION [None]
  - TREMOR [None]
  - WHITE BLOOD CELL COUNT DECREASED [None]
